FAERS Safety Report 24592831 (Version 1)
Quarter: 2024Q4

REPORT INFORMATION
  Report Type: Spontaneous
  Country: US (occurrence: None)
  Receive Date: 20241107
  Receipt Date: 20241107
  Transmission Date: 20250115
  Serious: Yes (Other)
  Sender: Public
  Company Number: None

PATIENT
  Age: 65 Year
  Sex: Female
  Weight: 96.75 kg

DRUGS (1)
  1. DUPIXENT [Suspect]
     Active Substance: DUPILUMAB
     Indication: Dermatitis atopic
     Dosage: OTHER FREQUENCY : EVERY OTHER WEEK;?
     Route: 058
     Dates: start: 20240723

REACTIONS (6)
  - Weight increased [None]
  - Peripheral swelling [None]
  - Swelling face [None]
  - Dyspnoea [None]
  - Oxygen saturation decreased [None]
  - Diarrhoea [None]

NARRATIVE: CASE EVENT DATE: 20240801
